APPROVED DRUG PRODUCT: OLANZAPINE
Active Ingredient: OLANZAPINE
Strength: 20MG
Dosage Form/Route: TABLET, ORALLY DISINTEGRATING;ORAL
Application: A078109 | Product #004 | TE Code: AB
Applicant: STRIDES PHARMA INTERNATIONAL AG
Approved: Oct 24, 2011 | RLD: No | RS: No | Type: RX